FAERS Safety Report 12632076 (Version 2)
Quarter: 2016Q3

REPORT INFORMATION
  Report Type: Spontaneous
  Country: US (occurrence: US)
  Receive Date: 20160808
  Receipt Date: 20160808
  Transmission Date: 20161109
  Serious: No
  Sender: FDA-Public Use
  Company Number: US-BEH-2016061851

PATIENT
  Sex: Female
  Weight: 99 kg

DRUGS (29)
  1. HIZENTRA [Suspect]
     Active Substance: HUMAN IMMUNOGLOBULIN G
     Indication: IMMUNODEFICIENCY COMMON VARIABLE
     Route: 058
  2. LIDOCAINE/PRILOCAINE [Concomitant]
     Active Substance: LIDOCAINE\PRILOCAINE
  3. LASIX [Concomitant]
     Active Substance: FUROSEMIDE
  4. DUONEB [Concomitant]
     Active Substance: ALBUTEROL SULFATE\IPRATROPIUM BROMIDE
  5. VITAMIN D [Concomitant]
     Active Substance: CHOLECALCIFEROL
  6. CLARITIN [Concomitant]
     Active Substance: LORATADINE
  7. LAMICTAL [Concomitant]
     Active Substance: LAMOTRIGINE
  8. REQUIP [Concomitant]
     Active Substance: ROPINIROLE HYDROCHLORIDE
  9. OXYBUTYNIN [Concomitant]
     Active Substance: OXYBUTYNIN
  10. MOTRIN [Concomitant]
     Active Substance: IBUPROFEN
  11. AMOXICILLIN. [Concomitant]
     Active Substance: AMOXICILLIN
  12. EPIPEN [Concomitant]
     Active Substance: EPINEPHRINE
  13. SYNTHROID [Concomitant]
     Active Substance: LEVOTHYROXINE SODIUM
  14. ADVAIR HFA [Concomitant]
     Active Substance: FLUTICASONE PROPIONATE\SALMETEROL XINAFOATE
  15. CARAFATE [Concomitant]
     Active Substance: SUCRALFATE
  16. METFORMIN [Concomitant]
     Active Substance: METFORMIN HYDROCHLORIDE
  17. ASPIRIN. [Concomitant]
     Active Substance: ASPIRIN
  18. HIZENTRA [Suspect]
     Active Substance: HUMAN IMMUNOGLOBULIN G
     Indication: SELECTIVE IGA IMMUNODEFICIENCY
     Route: 058
  19. ACETAMINOPHEN. [Concomitant]
     Active Substance: ACETAMINOPHEN
  20. DIPHENHYDRAMINE. [Concomitant]
     Active Substance: DIPHENHYDRAMINE
  21. OMEPRAZOLE. [Concomitant]
     Active Substance: OMEPRAZOLE
  22. AFRIN [Concomitant]
     Active Substance: OXYMETAZOLINE
  23. SINGULAIR [Concomitant]
     Active Substance: MONTELUKAST SODIUM
  24. CLOBETASOL [Concomitant]
     Active Substance: CLOBETASOL
  25. MULTIVITAMIN [Concomitant]
     Active Substance: VITAMINS
  26. FERROUS SULFATE. [Concomitant]
     Active Substance: FERROUS SULFATE
  27. ALEVE [Concomitant]
     Active Substance: NAPROXEN SODIUM
  28. LOVASTATIN. [Concomitant]
     Active Substance: LOVASTATIN
  29. SPIRIVA [Concomitant]
     Active Substance: TIOTROPIUM BROMIDE MONOHYDRATE

REACTIONS (1)
  - Sinusitis [Unknown]
